FAERS Safety Report 5063941-0 (Version None)
Quarter: 2006Q3

REPORT INFORMATION
  Report Type: 
  Country: None (occurrence: None)
  Receive Date: 20060703
  Receipt Date: 20050927
  Transmission Date: 20061208
  Serious: No
  Sender: FDA-Public Use
  Company Number: 2005S1009540

PATIENT
  Age: 53 Year
  Sex: Male

DRUGS (11)
  1. CLOZAPINE [Suspect]
     Indication: DRUG USE FOR UNKNOWN INDICATION
     Dosage: SEE IMAGE
     Route: 048
     Dates: start: 20050901
  2. CLOZAPINE [Suspect]
     Indication: DRUG USE FOR UNKNOWN INDICATION
     Dosage: SEE IMAGE
     Route: 048
     Dates: start: 20050901
  3. FAMOTIDINE [Concomitant]
  4. DOCUSATE [Concomitant]
  5. DULOXETINE [Concomitant]
  6. VALPROATE SODIUM [Concomitant]
  7. PROPRANOLOL [Concomitant]
  8. MAGNESIUM HYDROXIDE TAB [Concomitant]
  9. ACETAMINOPHEN [Concomitant]
  10. MAGNESIUM HYDROXIDE/ALUMINUM HYDROXIDE GEL, DRIED/SIMETICONE [Concomitant]
  11. NICOTINE [Concomitant]

REACTIONS (1)
  - GRANULOCYTOPENIA [None]
